FAERS Safety Report 16700132 (Version 1)
Quarter: 2019Q3

REPORT INFORMATION
  Report Type: Spontaneous
  Country: US (occurrence: US)
  Receive Date: 20190813
  Receipt Date: 20190813
  Transmission Date: 20191004
  Serious: Yes (Death)
  Sender: FDA-Public Use
  Company Number: PHHY2019US188120

PATIENT
  Age: 58 Year
  Sex: Male

DRUGS (1)
  1. ADALIMUMAB [Suspect]
     Active Substance: ADALIMUMAB
     Indication: HIDRADENITIS
     Route: 065

REACTIONS (4)
  - Skin squamous cell carcinoma metastatic [Fatal]
  - Papule [Fatal]
  - Erythema [Fatal]
  - Squamous cell carcinoma of skin [Fatal]
